FAERS Safety Report 12597587 (Version 3)
Quarter: 2016Q4

REPORT INFORMATION
  Report Type: Spontaneous
  Country: US (occurrence: US)
  Receive Date: 20160727
  Receipt Date: 20161027
  Transmission Date: 20170207
  Serious: No
  Sender: FDA-Public Use
  Company Number: US-PFIZER INC-2016348556

PATIENT
  Age: 67 Year
  Sex: Female
  Weight: 72.12 kg

DRUGS (8)
  1. TOPRAZOLE [Concomitant]
     Indication: GASTROOESOPHAGEAL REFLUX DISEASE
     Dosage: UNK
     Dates: start: 2012
  2. RESTASIS [Concomitant]
     Active Substance: CYCLOSPORINE
     Indication: LACRIMATION DISORDER
     Dosage: UNK
     Dates: start: 2013
  3. PROGESTERONE. [Concomitant]
     Active Substance: PROGESTERONE
     Indication: BLOOD OESTROGEN INCREASED
     Dosage: 200 MG, CYCLIC (200 MG CAPLET ONCE EVERY 3 MONTHS FOR 10 DAYS)
     Dates: start: 2014
  4. RESTASIS [Concomitant]
     Active Substance: CYCLOSPORINE
     Indication: DRY EYE
  5. EFFEXOR XR [Suspect]
     Active Substance: VENLAFAXINE HYDROCHLORIDE
     Indication: ANXIETY
     Dosage: UNK
     Route: 048
     Dates: start: 2011
  6. TOPRAZOLE [Concomitant]
     Dosage: 40 MG, DAILY
     Dates: start: 2012
  7. VIVELLE-DOT [Concomitant]
     Active Substance: ESTRADIOL
     Indication: OESTROGEN REPLACEMENT THERAPY
     Dosage: 0.025 MG, TWICE A WEEK
     Dates: start: 2011
  8. EFFEXOR XR [Suspect]
     Active Substance: VENLAFAXINE HYDROCHLORIDE
     Indication: DEPRESSION
     Dosage: 150 MG, DAILY
     Route: 048
     Dates: start: 1999

REACTIONS (8)
  - Therapeutic response unexpected [Recovered/Resolved]
  - Drug dose omission [Recovered/Resolved]
  - Abnormal dreams [Recovered/Resolved]
  - Gastrointestinal disorder [Recovered/Resolved]
  - Pre-existing condition improved [Recovered/Resolved]
  - Gastroenteritis viral [Not Recovered/Not Resolved]
  - Sleep talking [Recovered/Resolved]
  - Withdrawal syndrome [Unknown]

NARRATIVE: CASE EVENT DATE: 201511
